FAERS Safety Report 9795523 (Version 1)
Quarter: 2014Q1

REPORT INFORMATION
  Report Type: Report from Study
  Country: CO (occurrence: CO)
  Receive Date: 20140103
  Receipt Date: 20140103
  Transmission Date: 20141002
  Serious: Yes (Hospitalization)
  Sender: FDA-Public Use
  Company Number: CO-SA-2013SA135630

PATIENT
  Age: 64 Year
  Sex: Male

DRUGS (2)
  1. LANTUS [Suspect]
     Indication: DIABETES MELLITUS
     Dosage: DOSE:40 UNIT(S)
     Route: 058
     Dates: start: 20131126
  2. CAPTOPRIL [Concomitant]
     Indication: HYPERTENSION
     Route: 048

REACTIONS (3)
  - Headache [Recovered/Resolved]
  - Nausea [Recovered/Resolved]
  - Hyperglycaemia [Recovered/Resolved]
